FAERS Safety Report 10878987 (Version 1)
Quarter: 2015Q1

REPORT INFORMATION
  Report Type: Spontaneous
  Country: IN (occurrence: IN)
  Receive Date: 20150302
  Receipt Date: 20150302
  Transmission Date: 20150721
  Serious: Yes (Other)
  Sender: FDA-Public Use
  Company Number: PHHY2015IN020610

PATIENT
  Age: 29 Year
  Sex: Male

DRUGS (7)
  1. CLONAZEPAM. [Suspect]
     Active Substance: CLONAZEPAM
     Indication: PARKINSONISM
     Dosage: 1 UNK, UNK
     Route: 065
  2. SERTRALINE [Suspect]
     Active Substance: SERTRALINE HYDROCHLORIDE
     Indication: GENERALISED ANXIETY DISORDER
     Dosage: 100 MG, UNK
     Route: 065
  3. PROPRANOLOL [Suspect]
     Active Substance: PROPRANOLOL\PROPRANOLOL HYDROCHLORIDE
     Indication: GENERALISED ANXIETY DISORDER
     Dosage: 40 MG, UNK
     Route: 065
  4. BUSPIRONE [Suspect]
     Active Substance: BUSPIRONE HYDROCHLORIDE
     Indication: GENERALISED ANXIETY DISORDER
     Dosage: 5 MG, TID
     Route: 065
  5. CLONAZEPAM. [Suspect]
     Active Substance: CLONAZEPAM
     Indication: GENERALISED ANXIETY DISORDER
     Dosage: 0.5 MG, TID
     Route: 065
  6. FLUOXETINE [Suspect]
     Active Substance: FLUOXETINE\FLUOXETINE HYDROCHLORIDE
     Indication: GENERALISED ANXIETY DISORDER
     Dosage: 20 MG, QD
     Route: 065
  7. SERTRALINE [Suspect]
     Active Substance: SERTRALINE HYDROCHLORIDE
     Dosage: 50 MG, BID
     Route: 065

REACTIONS (2)
  - Parkinsonism [Unknown]
  - Disease recurrence [Unknown]
